FAERS Safety Report 9571376 (Version 4)
Quarter: 2016Q2

REPORT INFORMATION
  Report Type: Report from Study
  Country: US (occurrence: US)
  Receive Date: 20131001
  Receipt Date: 20160531
  Transmission Date: 20160815
  Serious: Yes (Other)
  Sender: FDA-Public Use
  Company Number: US-SANOFI-AVENTIS-2013SA072057

PATIENT
  Age: 48 Year
  Sex: Male

DRUGS (1)
  1. AUBAGIO [Suspect]
     Active Substance: TERIFLUNOMIDE
     Indication: MULTIPLE SCLEROSIS
     Route: 048
     Dates: start: 20130125, end: 20140101

REACTIONS (10)
  - Peripheral swelling [Unknown]
  - Thinking abnormal [Unknown]
  - Adverse event [Unknown]
  - Sleep apnoea syndrome [Unknown]
  - Gait disturbance [Unknown]
  - Multiple sclerosis [Unknown]
  - Ill-defined disorder [Unknown]
  - Depressed mood [Not Recovered/Not Resolved]
  - Drug ineffective [Unknown]
  - Product supply issue [Unknown]
